FAERS Safety Report 8591477-9 (Version None)
Quarter: 2012Q3

REPORT INFORMATION
  Report Type: 
  Country: None (occurrence: None)
  Receive Date: 20120814
  Receipt Date: 20120802
  Transmission Date: 20120928
  Serious: Yes (Death, Other)
  Sender: FDA-Public Use
  Company Number: AT-CELGENEUS-009-21880-11051599

PATIENT

DRUGS (3)
  1. DEXAMETHASONE [Concomitant]
     Indication: MULTIPLE MYELOMA
     Dosage: 40 MILLIGRAM
     Route: 065
  2. REVLIMID [Suspect]
     Route: 048
  3. DEXAMETHASONE [Concomitant]
     Dosage: 5.7143 MILLIGRAM
     Route: 065

REACTIONS (15)
  - CARDIAC ARREST [None]
  - THROMBOCYTOPENIA [None]
  - CARDIAC DISORDER [None]
  - CEREBROVASCULAR ACCIDENT [None]
  - SUDDEN DEATH [None]
  - ANAEMIA [None]
  - PULMONARY EMBOLISM [None]
  - MACULAR OEDEMA [None]
  - ORAL CANDIDIASIS [None]
  - HYPOKALAEMIA [None]
  - FATIGUE [None]
  - INFECTION [None]
  - SEPSIS [None]
  - LEUKOPENIA [None]
  - RASH [None]
